FAERS Safety Report 19942591 (Version 2)
Quarter: 2021Q4

REPORT INFORMATION
  Report Type: Spontaneous
  Country: DE (occurrence: DE)
  Receive Date: 20211011
  Receipt Date: 20211019
  Transmission Date: 20220303
  Serious: Yes (Other)
  Sender: FDA-Public Use
  Company Number: DE-AMGEN-DEUSP2021153300

PATIENT
  Age: 73 Year
  Sex: Female
  Weight: 55 kg

DRUGS (20)
  1. XGEVA [Suspect]
     Active Substance: DENOSUMAB
     Indication: Metastases to bone
     Dosage: UNK
     Route: 065
  2. AMLODIPINE [Concomitant]
     Active Substance: AMLODIPINE BESYLATE
     Dosage: 10 MILLIGRAM
     Dates: start: 20140121
  3. CANDESARTAN CILEXETIL [Concomitant]
     Active Substance: CANDESARTAN CILEXETIL
     Dosage: 16 MILLIGRAM
     Dates: start: 20140121
  4. METOPROLOL [Concomitant]
     Active Substance: METOPROLOL
     Dosage: 50 MILLIGRAM
     Dates: start: 20140121
  5. LAPATINIB [Concomitant]
     Active Substance: LAPATINIB
     Dosage: 1000 MG/METER SQUARE
     Dates: start: 20141205, end: 20141218
  6. LAPATINIB [Concomitant]
     Active Substance: LAPATINIB
     Dosage: 1000 MG/METER SQUARE
     Dates: start: 20141219, end: 20150108
  7. LAPATINIB [Concomitant]
     Active Substance: LAPATINIB
     Dosage: 1000 MG/METER SQUARE
     Dates: start: 20150109, end: 20150204
  8. LAPATINIB [Concomitant]
     Active Substance: LAPATINIB
     Dosage: 1000 MG/METER SQUARE
     Dates: start: 20150205, end: 20150225
  9. LAPATINIB [Concomitant]
     Active Substance: LAPATINIB
     Dosage: 1000 MG/METER SQUARE
     Dates: start: 20150226, end: 20150318
  10. LAPATINIB [Concomitant]
     Active Substance: LAPATINIB
     Dosage: 1000 MG/METER SQUARE
     Dates: start: 20150319, end: 20150408
  11. LAPATINIB [Concomitant]
     Active Substance: LAPATINIB
     Dosage: 1000 MG/METER SQUARE
     Dates: start: 20150409, end: 20150429
  12. LAPATINIB [Concomitant]
     Active Substance: LAPATINIB
     Dosage: 1000 MG/METER SQUARE
     Dates: start: 20150430, end: 20150520
  13. NAVELBINE [Concomitant]
     Active Substance: VINORELBINE TARTRATE
     Dosage: 20 MG/METER SQUARE
     Dates: start: 20141205, end: 20141212
  14. NAVELBINE [Concomitant]
     Active Substance: VINORELBINE TARTRATE
     Dosage: 20 MG/METER SQUARE
     Dates: start: 20141219, end: 20150109
  15. NAVELBINE [Concomitant]
     Active Substance: VINORELBINE TARTRATE
     Dosage: 20 MG/METER SQUARE
     Dates: start: 20150116, end: 20150126
  16. NAVELBINE [Concomitant]
     Active Substance: VINORELBINE TARTRATE
     Dosage: 20 MG/METER SQUARE
     Dates: start: 20150205, end: 20150212
  17. NAVELBINE [Concomitant]
     Active Substance: VINORELBINE TARTRATE
     Dosage: 20 MG/METER SQUARE
     Dates: start: 20150226, end: 20150305
  18. NAVELBINE [Concomitant]
     Active Substance: VINORELBINE TARTRATE
     Dosage: 20 MG/METER SQUARE
     Dates: start: 20150319, end: 20150326
  19. NAVELBINE [Concomitant]
     Active Substance: VINORELBINE TARTRATE
     Dosage: 20 MG/METER SQUARE
     Dates: start: 20150409, end: 20150416
  20. NAVELBINE [Concomitant]
     Active Substance: VINORELBINE TARTRATE
     Dosage: 20 MG/METER SQUARE
     Dates: start: 20150430, end: 20150507

REACTIONS (3)
  - Erythema multiforme [Recovered/Resolved]
  - Onychoclasis [Recovered/Resolved]
  - Muscle spasms [Recovered/Resolved]

NARRATIVE: CASE EVENT DATE: 20150212
